FAERS Safety Report 7158086-X (Version None)
Quarter: 2010Q4

REPORT INFORMATION
  Report Type: 
  Country: None (occurrence: None)
  Receive Date: 20101130
  Receipt Date: 20101116
  Transmission Date: 20110411
  Serious: Yes (Hospitalization)
  Sender: FDA-Public Use
  Company Number: 761827

PATIENT
  Age: 74 Year
  Sex: Male

DRUGS (8)
  1. OXALIPLATIN [Suspect]
     Indication: COLON CANCER METASTATIC
     Dosage: 165 MG MILLIGRAM(S), INTRAVENOUS
     Route: 042
     Dates: start: 20090909, end: 20100127
  2. FLUOROURACIL [Suspect]
     Dosage: INTRAVENOUS
     Route: 042
     Dates: start: 20090909, end: 20100127
  3. AVASTIN [Suspect]
     Indication: COLON CANCER METASTATIC
     Dosage: 400 MG MILLIGRAM(S), INTRAVENOUS
     Route: 042
     Dates: start: 20090909, end: 20100113
  4. ALLOPURINOL [Concomitant]
  5. EUPANTOL [Concomitant]
  6. FERROUS SUCCINATE [Concomitant]
  7. METEOSPASMYL [Concomitant]
  8. PRAVASTATIN [Concomitant]

REACTIONS (5)
  - CAROTID ARTERIOSCLEROSIS [None]
  - COLON CANCER METASTATIC [None]
  - HAEMORRHAGIC TRANSFORMATION STROKE [None]
  - ISCHAEMIC STROKE [None]
  - MALIGNANT NEOPLASM PROGRESSION [None]
